FAERS Safety Report 9795603 (Version 1)
Quarter: 2014Q1

REPORT INFORMATION
  Report Type: Spontaneous
  Country: US (occurrence: US)
  Receive Date: 20140103
  Receipt Date: 20140103
  Transmission Date: 20141002
  Serious: Yes (Other)
  Sender: FDA-Public Use
  Company Number: US-BAYER-2014-000798

PATIENT
  Age: 41 Year
  Sex: Female
  Weight: 83 kg

DRUGS (10)
  1. YAZ [Suspect]
  2. OCELLA [Suspect]
  3. YASMIN [Suspect]
  4. BIAXIN [Concomitant]
     Dosage: 500 MG, BID [TIMES 10]
     Route: 048
  5. CLARITHROMYCIN [Concomitant]
     Dosage: 500 MG, BID, [TIMES 10]
     Route: 048
  6. PROMETHAZINE W/CODEINE [Concomitant]
     Dosage: 6.25-10 MG/5ML, 1 TEASPOON EVERY 6 HOURS PRN
     Route: 048
  7. PREDNISONE [Concomitant]
     Dosage: 20 MG, UNK
     Route: 048
  8. TRAMADOL [Concomitant]
     Dosage: 50 MG, UNK
     Route: 048
  9. CYCLOBENZAPRINE [Concomitant]
     Dosage: 10 MG, UNK
     Route: 048
  10. ACIPHEX [Concomitant]

REACTIONS (3)
  - Thrombophlebitis superficial [None]
  - Deep vein thrombosis [None]
  - Cholelithiasis [None]
